FAERS Safety Report 4449047-X (Version None)
Quarter: 2004Q3

REPORT INFORMATION
  Report Type: 
  Country: None (occurrence: None)
  Receive Date: 20040909
  Receipt Date: 20040823
  Transmission Date: 20050211
  Serious: Yes (Hospitalization)
  Sender: FDA-Public Use
  Company Number: USA040876336

PATIENT
  Age: 53 Year
  Sex: Male
  Weight: 75 kg

DRUGS (6)
  1. HUMALOG [Suspect]
     Dates: start: 19960101
  2. HUMULIN R [Suspect]
     Dates: start: 19960101
  3. HUMULIN U [Suspect]
     Dates: start: 19960101
  4. HUMULIN N [Suspect]
     Dates: start: 19950101, end: 19960101
  5. ACCUPRIL [Concomitant]
  6. IBUPROFEN [Concomitant]

REACTIONS (4)
  - FALL [None]
  - HYPOGLYCAEMIA [None]
  - PHARMACEUTICAL PRODUCT COMPLAINT [None]
  - ROAD TRAFFIC ACCIDENT [None]
